FAERS Safety Report 23654624 (Version 4)
Quarter: 2025Q1

REPORT INFORMATION
  Report Type: Report from Study
  Country: CL (occurrence: CL)
  Receive Date: 20240320
  Receipt Date: 20250221
  Transmission Date: 20250409
  Serious: Yes (Hospitalization, Other)
  Sender: GLAXOSMITHKLINE
  Company Number: CL-GSKCCFAMERS-Case-01957738_AE-108790

PATIENT

DRUGS (3)
  1. MEPOLIZUMAB [Suspect]
     Active Substance: MEPOLIZUMAB
     Indication: Asthma
     Dosage: 100 MG, MO
     Dates: start: 20200420
  2. MEPOLIZUMAB [Suspect]
     Active Substance: MEPOLIZUMAB
     Indication: Asthma
     Dosage: 100 MG, MO
  3. MEPOLIZUMAB [Suspect]
     Active Substance: MEPOLIZUMAB
     Dates: start: 20210622

REACTIONS (11)
  - Asthma [Unknown]
  - Influenza [Unknown]
  - Disease recurrence [Unknown]
  - Respiratory failure [Unknown]
  - Pneumonia [Unknown]
  - Infection [Unknown]
  - COVID-19 [Unknown]
  - Polyp [Recovered/Resolved]
  - Eosinophil count increased [Not Recovered/Not Resolved]
  - Spirometry abnormal [Unknown]
  - Product dose omission issue [Unknown]

NARRATIVE: CASE EVENT DATE: 20240508
